FAERS Safety Report 25998518 (Version 1)
Quarter: 2025Q4

REPORT INFORMATION
  Report Type: Spontaneous
  Country: US (occurrence: US)
  Receive Date: 20251105
  Receipt Date: 20251105
  Transmission Date: 20260118
  Serious: Yes (Other)
  Sender: AMGEN
  Company Number: US-AMGEN-USASP2025215609

PATIENT
  Age: 19 Year
  Sex: Female

DRUGS (8)
  1. PREDNISONE [Suspect]
     Active Substance: PREDNISONE
     Indication: Chronic graft versus host disease
     Dosage: FOR 18 MONTHS
     Route: 065
  2. PREDNISONE [Suspect]
     Active Substance: PREDNISONE
     Indication: Rash morbilliform
     Dosage: SIX WEEKS
     Route: 048
  3. RITUXIMAB [Suspect]
     Active Substance: RITUXIMAB
     Indication: Chronic graft versus host disease
     Dosage: 3 TREATMENTS
     Route: 065
  4. PSORALEN [Concomitant]
     Active Substance: PSORALEN
     Indication: Chronic graft versus host disease
     Dosage: ULTRAVIOLET THERAPY FOR 21 TREATMENTS
     Route: 065
  5. TACROLIMUS [Concomitant]
     Active Substance: TACROLIMUS
     Indication: Chronic graft versus host disease
     Dosage: 26 MONTHS
     Route: 065
  6. MYCOPHENOLATE MOFETIL [Concomitant]
     Active Substance: MYCOPHENOLATE MOFETIL
     Indication: Chronic graft versus host disease
     Dosage: 8 MONTHS
     Route: 065
  7. HUMAN IMMUNOGLOBULIN G [Concomitant]
     Active Substance: HUMAN IMMUNOGLOBULIN G
     Indication: Chronic graft versus host disease
     Dosage: 2 TREATMENTS
     Route: 040
  8. VORICONAZOLE [Concomitant]
     Active Substance: VORICONAZOLE
     Indication: Chronic graft versus host disease
     Dosage: 35 DAYS
     Route: 065

REACTIONS (2)
  - Squamous cell carcinoma of skin [Unknown]
  - Off label use [Unknown]
